FAERS Safety Report 6143920-2 (Version None)
Quarter: 2009Q2

REPORT INFORMATION
  Report Type: 
  Country: None (occurrence: None)
  Receive Date: 20090406
  Receipt Date: 20090323
  Transmission Date: 20091009
  Serious: Yes (Disabling)
  Sender: FDA-Public Use
  Company Number: JP-PFIZER INC-2009192527

PATIENT

DRUGS (1)
  1. AMLODIPINE [Suspect]
     Dosage: 5 MG, UNK

REACTIONS (1)
  - TOOTH LOSS [None]
